FAERS Safety Report 4748592-7 (Version None)
Quarter: 2005Q3

REPORT INFORMATION
  Report Type: 
  Country: None (occurrence: None)
  Receive Date: 20050817
  Receipt Date: 20050805
  Transmission Date: 20060218
  Serious: Yes (Hospitalization, Other)
  Sender: FDA-Public Use
  Company Number: HQWYE845201JUL04

PATIENT
  Age: 19 Year
  Sex: Female
  Weight: 51.5 kg

DRUGS (18)
  1. RAPAMUNE [Suspect]
     Indication: PROPHYLAXIS AGAINST TRANSPLANT REJECTION
     Dosage: 4 MG 1X PER 1 DAY, ORAL
     Route: 048
     Dates: start: 20030223
  2. RAPAMUNE [Suspect]
  3. PREDNISONE [Concomitant]
  4. TRACROLIMUS (TACROLIMUS) [Concomitant]
  5. CALCIUM CARBONATE (CALCIUM CARBONATE) [Concomitant]
  6. CALCITRIOL [Concomitant]
  7. NIFEDIPINE [Concomitant]
  8. RANITIDINE [Concomitant]
  9. ZYRTEC [Concomitant]
  10. SINGULAIR [Concomitant]
  11. FLUTICASONE PROPIONATE [Concomitant]
  12. BACTRIM [Concomitant]
  13. VALGANCICLOVIR (VALGANCICLOVIR) [Concomitant]
  14. K-PHOS (POTASSIUM PHOSPHATE MONOBASIC) [Concomitant]
  15. ALBUTEROL [Concomitant]
  16. NIFEREX (POLYSACCHARIDE-IRON COMPLEX) [Concomitant]
  17. K-PHOS (POTASSIUM PHOSPHATE MONOBASIC) [Concomitant]
  18. ERYTHROPOIETIN (ERYTHROPOIETIN) [Concomitant]

REACTIONS (6)
  - BLADDER MASS [None]
  - GASTROINTESTINAL PAIN [None]
  - HYDRONEPHROSIS [None]
  - NEOPLASM RECURRENCE [None]
  - PYREXIA [None]
  - TRANSPLANT REJECTION [None]
